FAERS Safety Report 9935243 (Version 1)
Quarter: 2014Q1

REPORT INFORMATION
  Report Type: Spontaneous
  Country: US (occurrence: US)
  Receive Date: 20140228
  Receipt Date: 20140228
  Transmission Date: 20141002
  Serious: Yes (Hospitalization)
  Sender: FDA-Public Use
  Company Number: US-BRACCO-010614

PATIENT
  Age: 75 Year
  Sex: Male

DRUGS (1)
  1. BARIUM [Suspect]
     Indication: BARIUM SWALLOW
     Route: 048

REACTIONS (7)
  - Hypoxia [Unknown]
  - Aspiration [Unknown]
  - Medication residue present [Unknown]
  - Dyspnoea [Unknown]
  - Cough [Unknown]
  - Pyrexia [Unknown]
  - Breath sounds abnormal [Unknown]
